FAERS Safety Report 25028908 (Version 2)
Quarter: 2025Q4

REPORT INFORMATION
  Report Type: Spontaneous
  Country: US (occurrence: US)
  Receive Date: 20250302
  Receipt Date: 20251002
  Transmission Date: 20260117
  Serious: No
  Sender: SANOFI AVENTIS
  Company Number: US-SA-2025SA061640

PATIENT
  Sex: Female

DRUGS (2)
  1. DUPIXENT [Suspect]
     Active Substance: DUPILUMAB
     Indication: Dermatitis atopic
     Dosage: 200 MG, QOW
     Route: 058
     Dates: start: 202205
  2. DUPIXENT [Suspect]
     Active Substance: DUPILUMAB
     Indication: Asthma

REACTIONS (4)
  - Asthma [Unknown]
  - Therapeutic response shortened [Unknown]
  - Eczema [Recovering/Resolving]
  - Therapeutic response shortened [Recovering/Resolving]

NARRATIVE: CASE EVENT DATE: 20250901
